FAERS Safety Report 5613883-4 (Version None)
Quarter: 2008Q1

REPORT INFORMATION
  Report Type: 
  Country: None (occurrence: None)
  Receive Date: 20080205
  Receipt Date: 20080123
  Transmission Date: 20080703
  Serious: Yes (Hospitalization)
  Sender: FDA-Public Use
  Company Number: US-ELI_LILLY_AND_COMPANY-US200705002013

PATIENT
  Age: 39 Year
  Sex: Female

DRUGS (3)
  1. CYMBALTA [Suspect]
     Dosage: 30 MG, DAILY (1/D)
     Dates: start: 20051101
  2. CYMBALTA [Suspect]
     Dosage: 90 MG, UNK
     Dates: start: 20051201
  3. CYMBALTA [Suspect]
     Dosage: 120 MG, DAILY (1/D)

REACTIONS (6)
  - DEPRESSION [None]
  - DISTURBANCE IN ATTENTION [None]
  - MORBID THOUGHTS [None]
  - SOMNOLENCE [None]
  - SUICIDAL IDEATION [None]
  - URINARY RETENTION [None]
